FAERS Safety Report 16252671 (Version 2)
Quarter: 2019Q3

REPORT INFORMATION
  Report Type: Spontaneous
  Country: GB (occurrence: GB)
  Receive Date: 20190429
  Receipt Date: 20190703
  Transmission Date: 20191004
  Serious: Yes (Hospitalization)
  Sender: FDA-Public Use
  Company Number: GB-MYLANLABS-2019M1039465

PATIENT
  Age: 89 Year
  Sex: Male
  Weight: 93.7 kg

DRUGS (7)
  1. OLANZAPINE. [Suspect]
     Active Substance: OLANZAPINE
     Indication: PROPHYLAXIS OF NAUSEA AND VOMITING
     Dosage: 10 MILLIGRAM (STATE DOSE)
     Route: 048
     Dates: start: 20181030, end: 20181030
  2. CISPLATIN. [Concomitant]
     Active Substance: CISPLATIN
     Indication: CHEMOTHERAPY
     Dosage: UNK
     Route: 042
     Dates: start: 20181030
  3. VINORELBINE [Concomitant]
     Active Substance: VINORELBINE TARTRATE
     Dosage: 120 MILLIGRAM
     Route: 048
     Dates: start: 20181030
  4. QUININE SULFATE. [Concomitant]
     Active Substance: QUININE SULFATE
     Indication: PRODUCT USED FOR UNKNOWN INDICATION
     Dosage: 200 MILLIGRAM PRN (AT NIGHT)
  5. CARBOCISTEINE [Concomitant]
     Active Substance: CARBOCYSTEINE
     Dosage: 750 MILLIGRAM, QD
  6. TIMOLOL. [Concomitant]
     Active Substance: TIMOLOL
     Dosage: 1 GTT DROPS, QD (NIGHT)
     Route: 050
  7. FOLIC ACID. [Concomitant]
     Active Substance: FOLIC ACID
     Dosage: 5 MILLIGRAM, QD

REACTIONS (7)
  - Blood pressure decreased [Unknown]
  - Somnolence [Unknown]
  - Gait disturbance [Recovered/Resolved]
  - Feeling abnormal [Recovered/Resolved]
  - Aggression [Recovered/Resolved]
  - Confusional state [Recovered/Resolved with Sequelae]
  - Dysarthria [Recovered/Resolved]

NARRATIVE: CASE EVENT DATE: 20181030
